FAERS Safety Report 15490894 (Version 1)
Quarter: 2018Q4

REPORT INFORMATION
  Report Type: Spontaneous
  Country: US (occurrence: US)
  Receive Date: 20181012
  Receipt Date: 20181012
  Transmission Date: 20190205
  Serious: No
  Sender: FDA-Public Use
  Company Number: US-IPSEN BIOPHARMACEUTICALS, INC.-2018-14922

PATIENT
  Age: 53 Year
  Sex: Female

DRUGS (4)
  1. RESTYLANE LYFT [Suspect]
     Active Substance: HYALURONIC ACID
     Dosage: 1.5 ML ON EACH SIDE ON CHEEKS.
     Dates: start: 20180918, end: 20180918
  2. BOTOX [Suspect]
     Active Substance: ONABOTULINUMTOXINA
     Indication: SKIN COSMETIC PROCEDURE
     Dosage: COUPLE YEARS AGO
  3. DYSPORT [Suspect]
     Active Substance: ABOBOTULINUMTOXINA
     Indication: SKIN COSMETIC PROCEDURE
     Dosage: NOT REPORTED
     Route: 030
  4. NATURES WORTH NATURAL THYROID [Concomitant]
     Indication: HYPOTHYROIDISM

REACTIONS (2)
  - Headache [Recovered/Resolved]
  - Drug ineffective [Unknown]

NARRATIVE: CASE EVENT DATE: 20180918
